FAERS Safety Report 9163337 (Version 2)
Quarter: 2013Q2

REPORT INFORMATION
  Report Type: Spontaneous
  Country: CA (occurrence: CA)
  Receive Date: 20130314
  Receipt Date: 20130514
  Transmission Date: 20140414
  Serious: Yes (Hospitalization, Other)
  Sender: FDA-Public Use
  Company Number: CA-ROCHE-GNE299406

PATIENT
  Sex: Male
  Weight: 66.77 kg

DRUGS (3)
  1. XOLAIR [Suspect]
     Indication: ASTHMA
     Dosage: 300 MG, 1/MONTH
     Route: 058
     Dates: start: 20090123
  2. XOLAIR [Suspect]
     Dosage: UNK
     Route: 065
     Dates: start: 20100305
  3. XOLAIR [Suspect]
     Route: 058
     Dates: start: 20090327

REACTIONS (14)
  - Pancreas infection [Unknown]
  - Pneumonia [Unknown]
  - Renal failure [Unknown]
  - Escherichia test positive [Unknown]
  - Central nervous system lesion [Unknown]
  - Unresponsive to stimuli [Unknown]
  - Feeling abnormal [Unknown]
  - Joint swelling [Unknown]
  - Malaise [Unknown]
  - Coma [Unknown]
  - Cerebral haemorrhage [Recovered/Resolved]
  - Transient ischaemic attack [Unknown]
  - Thrombosis [Unknown]
  - Viral infection [Unknown]
